FAERS Safety Report 5160807-2 (Version None)
Quarter: 2006Q4

REPORT INFORMATION
  Report Type: 
  Country: None (occurrence: None)
  Receive Date: 20061121
  Receipt Date: 20061107
  Transmission Date: 20070319
  Serious: Yes (Hospitalization, Other)
  Sender: FDA-Public Use
  Company Number: ES-2006-027756

PATIENT
  Age: 64 Year
  Sex: Male
  Weight: 78 kg

DRUGS (17)
  1. BENEFLUR INJ. (FLUDARABINE PHOSPHATE)AMPULE [Suspect]
     Indication: CHRONIC LYMPHOCYTIC LEUKAEMIA
     Dosage: 4.75 MG, 3X/DAY, INTRAVENOUS
     Route: 042
     Dates: start: 20060906, end: 20060908
  2. ISONIAZID [Concomitant]
  3. DILUTOL (TORASEMIDE) [Concomitant]
  4. ATENOLOL [Concomitant]
  5. TERBASMIN (TERBUTALINE SULFATE) [Concomitant]
  6. SPIRIVA [Concomitant]
  7. CLORAZEPATE DIPOTASSIUM [Concomitant]
  8. PROSCAR [Concomitant]
  9. VALTREX [Concomitant]
  10. SEPTRA [Concomitant]
  11. ACETYLSALICYLIC ACID SRT [Concomitant]
  12. ENALAPRIL MALEATE [Concomitant]
  13. IS COVER [Concomitant]
  14. UNIBENESTAN [Concomitant]
  15. DROMBES [Concomitant]
  16. OMACOR (OMEGA-3 MARINE TRIGLYCERIDES) [Concomitant]
  17. SIMVASTATIN [Concomitant]

REACTIONS (10)
  - ARTHRALGIA [None]
  - DEPRESSED LEVEL OF CONSCIOUSNESS [None]
  - HALLUCINATION, VISUAL [None]
  - HYPERREFLEXIA [None]
  - INSOMNIA [None]
  - MUSCULOSKELETAL CHEST PAIN [None]
  - NERVOUSNESS [None]
  - PAIN [None]
  - POLYNEUROPATHY [None]
  - TREMOR [None]
